FAERS Safety Report 6310118-4 (Version None)
Quarter: 2009Q3

REPORT INFORMATION
  Report Type: 
  Country: None (occurrence: None)
  Receive Date: 20090814
  Receipt Date: 20090804
  Transmission Date: 20100115
  Serious: Yes (Hospitalization)
  Sender: FDA-Public Use
  Company Number: JP-WATSON-2009-04371

PATIENT
  Sex: Male

DRUGS (8)
  1. RAPAFLO [Suspect]
     Indication: HYPERTONIC BLADDER
     Dosage: 4 MG, BID
     Route: 048
     Dates: start: 20090513, end: 20090605
  2. VESICARE                           /01735901/ [Suspect]
     Indication: HYPERTONIC BLADDER
     Dosage: 5 MG, DAILY
     Route: 048
     Dates: start: 20090513
  3. ERYTHROMYCIN [Concomitant]
     Indication: STAPHYLOCOCCAL INFECTION
     Dosage: 3 DF, DAILY
     Route: 048
  4. THEOLONG [Concomitant]
     Indication: EMPHYSEMA
     Dosage: 2 DF, DAILY
     Route: 048
  5. TERSIGAN [Concomitant]
     Indication: EMPHYSEMA
     Dosage: 0.3 MG, DAILY
     Route: 055
  6. MUCODYNE [Concomitant]
     Indication: EMPHYSEMA
     Dosage: 3 DF, DAILY
     Route: 048
  7. LASIX [Concomitant]
     Indication: OEDEMA
     Dosage: 10 MG, 2 DAYS
     Route: 048
  8. GOSHAJINKIGAN [Concomitant]
     Indication: DRUG USE FOR UNKNOWN INDICATION
     Dosage: 7.5 G, UNKNOWN
     Route: 048
     Dates: start: 20090513

REACTIONS (3)
  - BRADYCARDIA [None]
  - CARDIAC FAILURE [None]
  - OEDEMA PERIPHERAL [None]
